FAERS Safety Report 7381126-X (Version None)
Quarter: 2011Q1

REPORT INFORMATION
  Report Type: 
  Country: None (occurrence: None)
  Receive Date: 20110329
  Receipt Date: 20100908
  Transmission Date: 20110831
  Serious: No
  Sender: FDA-Public Use
  Company Number: US-AMGEN-KDL436852

PATIENT
  Age: 28 Year
  Sex: Female

DRUGS (2)
  1. PARICALCITOL [Suspect]
     Indication: HYPERPARATHYROIDISM PRIMARY
     Dosage: UNK UNK, UNK
     Dates: end: 20100701
  2. SENSIPAR [Suspect]
     Indication: PRODUCT USED FOR UNKNOWN INDICATION
     Dosage: UNK UNK, UNK

REACTIONS (2)
  - NAUSEA [None]
  - VOMITING [None]
